FAERS Safety Report 4603665-4 (Version None)
Quarter: 2005Q1

REPORT INFORMATION
  Report Type: 
  Country: None (occurrence: None)
  Receive Date: 20050308
  Receipt Date: 20050308
  Transmission Date: 20050727
  Serious: Yes (Hospitalization)
  Sender: FDA-Public Use
  Company Number: None

PATIENT
  Sex: Male
  Weight: 89.8122 kg

DRUGS (6)
  1. VIOXX [Suspect]
     Indication: ARTHRALGIA
     Dosage: 25 MG PO QD
     Route: 048
     Dates: end: 20040903
  2. TRICOR [Concomitant]
  3. WELCOL [Concomitant]
  4. ZANTAC [Concomitant]
  5. HYDROCODONE BITARTRATE + ACETAMINOPHEN [Concomitant]
  6. ALPRAZOLAM [Concomitant]

REACTIONS (2)
  - CORONARY ARTERY OCCLUSION [None]
  - HIATUS HERNIA [None]
